FAERS Safety Report 12676218 (Version 1)
Quarter: 2016Q3

REPORT INFORMATION
  Report Type: Spontaneous
  Country: US (occurrence: US)
  Receive Date: 20160823
  Receipt Date: 20160823
  Transmission Date: 20161109
  Serious: Yes (Death)
  Sender: FDA-Public Use
  Company Number: US-PFIZER INC-2016390223

PATIENT
  Age: 74 Year
  Sex: Female
  Weight: 72 kg

DRUGS (11)
  1. PROCHLORPERAZINE. [Concomitant]
     Active Substance: PROCHLORPERAZINE
     Dosage: 10 MG, 4X/DAY, ^EVERY 6 HOURS AS NEEDED^
     Route: 048
  2. HYDROCODONE [Concomitant]
     Active Substance: HYDROCODONE
     Indication: PAIN
     Dosage: 2 MG, 4X/DAY, ^EVERY 6 HOURS AS NEEDED^
     Route: 048
  3. ESCITALOPRAM [Concomitant]
     Active Substance: ESCITALOPRAM OXALATE
     Dosage: 5 MG, DAILY
     Route: 048
  4. IBRANCE [Suspect]
     Active Substance: PALBOCICLIB
     Indication: BREAST CANCER
     Dosage: UNK
     Dates: start: 2015
  5. FUROSEMIDE. [Concomitant]
     Active Substance: FUROSEMIDE
     Dosage: 40 MG, 1X/DAY
     Route: 048
  6. ONDANSETRON [Concomitant]
     Active Substance: ONDANSETRON
     Dosage: 8 MG, 3X/DAY, ^DISSOLVE ONE UNDER TONGUE THREE TIMES DAILY AS NEEDED^
     Route: 060
  7. METHADONE [Concomitant]
     Active Substance: METHADONE HYDROCHLORIDE
     Dosage: 10 MG, 2X/DAY
     Route: 048
  8. CAPECITABINE. [Concomitant]
     Active Substance: CAPECITABINE
     Dosage: 3000 MG, CYCLIC, ^500 MG 3 TABS EVERY MORNING AND 3 TAB EVERY EVENING, DAYS 1-14, THEN 7 DAYS STOP^
     Route: 048
  9. LETROZOLE. [Concomitant]
     Active Substance: LETROZOLE
     Indication: BREAST CANCER
     Dosage: 2.5 MG, 1X/DAY
     Route: 048
     Dates: start: 2015
  10. LORAZEPAM. [Concomitant]
     Active Substance: LORAZEPAM
     Indication: NAUSEA
     Dosage: 0.5 MG, 2X/DAY, ^AS NEEDED^
  11. AROMASIN [Concomitant]
     Active Substance: EXEMESTANE
     Dosage: 25 MG, DAILY, ^AFTER A MEAL^
     Route: 048

REACTIONS (2)
  - Breast cancer [Fatal]
  - Disease progression [Fatal]
